FAERS Safety Report 11240959 (Version 1)
Quarter: 2015Q3

REPORT INFORMATION
  Report Type: Spontaneous
  Country: US (occurrence: US)
  Receive Date: 20150706
  Receipt Date: 20150706
  Transmission Date: 20151125
  Serious: No
  Sender: FDA-Public Use
  Company Number: US-ASTRAZENECA-2015SE62795

PATIENT
  Age: 929 Month
  Sex: Female

DRUGS (5)
  1. ADVIL [Concomitant]
     Active Substance: IBUPROFEN
     Indication: MALAISE
     Route: 065
  2. EYLEA [Concomitant]
     Active Substance: AFLIBERCEPT
     Indication: MACULAR DEGENERATION
     Route: 047
  3. SYMBICORT [Suspect]
     Active Substance: BUDESONIDE\FORMOTEROL FUMARATE DIHYDRATE
     Indication: BRONCHITIS
     Dosage: 80 4.5 MG ONE PUFF TWICE DAILY
     Route: 055
     Dates: start: 20150418
  4. ARID 2 [Concomitant]
     Indication: MACULAR DEGENERATION
     Route: 047
  5. AMITRIPTYLINE [Concomitant]
     Active Substance: AMITRIPTYLINE
     Indication: SLEEP DISORDER
     Route: 065

REACTIONS (9)
  - Wheezing [Unknown]
  - Product use issue [Unknown]
  - Upper respiratory tract infection [Unknown]
  - Insomnia [Unknown]
  - Pyrexia [Unknown]
  - Productive cough [Unknown]
  - Malaise [Unknown]
  - Feeling abnormal [Unknown]
  - Intentional product misuse [Unknown]

NARRATIVE: CASE EVENT DATE: 201506
